FAERS Safety Report 21329755 (Version 1)
Quarter: 2022Q3

REPORT INFORMATION
  Report Type: Report from Study
  Country: US (occurrence: US)
  Receive Date: 20220913
  Receipt Date: 20220913
  Transmission Date: 20221027
  Serious: Yes (Death, Other)
  Sender: FDA-Public Use
  Company Number: US-BRISTOL-MYERS SQUIBB COMPANY-2022-105187

PATIENT
  Age: 80 Year
  Sex: Male
  Weight: 75.3 kg

DRUGS (4)
  1. REVLIMID [Suspect]
     Active Substance: LENALIDOMIDE
     Indication: Plasma cell myeloma
     Route: 065
     Dates: start: 20200205
  2. REVLIMID [Suspect]
     Active Substance: LENALIDOMIDE
     Dosage: WEEKLY FOR 2 CYCLES THEM MONTHLY
     Route: 042
     Dates: start: 20190423, end: 20200901
  3. DECADRON (DEXAMETHASONE SODIUM PHOSPHATE) [Suspect]
     Active Substance: DEXAMETHASONE SODIUM PHOSPHATE
     Indication: Plasma cell myeloma
     Dosage: LOW DOSE. 20 MG WEEKLY DAY OF EMPLICITI THEN 8 MG THAT DAY
     Route: 048
     Dates: start: 20190423, end: 20200901
  4. DEXAMETHASONE SODIUM SUCCINATE [Suspect]
     Active Substance: DEXAMETHASONE SODIUM SUCCINATE
     Indication: Plasma cell myeloma
     Dosage: LOW DOSE 8 MG ON DAY OF EMPLICITI INFUSION ONLY
     Route: 042
     Dates: start: 20190423, end: 20200901

REACTIONS (1)
  - Death [Fatal]

NARRATIVE: CASE EVENT DATE: 20200228
